FAERS Safety Report 6899760-X (Version None)
Quarter: 2010Q3

REPORT INFORMATION
  Report Type: 
  Country: None (occurrence: None)
  Receive Date: 20100708
  Receipt Date: 20090720
  Transmission Date: 20110219
  Serious: Yes (Other)
  Sender: FDA-Public Use
  Company Number: 2009245432

PATIENT
  Age: 28 Year
  Sex: Female
  Weight: 77.1 kg

DRUGS (5)
  1. CHANTIX [Suspect]
     Indication: SMOKING CESSATION THERAPY
     Dosage: 0.5 MG, 1X/DAY, ORAL
     Route: 048
     Dates: start: 20090716
  2. CHLORHEXIDINE GLUCONATE [Concomitant]
  3. ALPRAZOLAM [Concomitant]
  4. FLUOXETINE HCL [Concomitant]
  5. OMEPRAZOLE [Concomitant]

REACTIONS (3)
  - ABDOMINAL PAIN UPPER [None]
  - PHARYNGEAL OEDEMA [None]
  - STOMATITIS [None]
